FAERS Safety Report 4808170-8 (Version None)
Quarter: 2005Q4

REPORT INFORMATION
  Report Type: 
  Country: None (occurrence: None)
  Receive Date: 20051020
  Receipt Date: 20051006
  Transmission Date: 20060501
  Serious: Yes (Hospitalization)
  Sender: FDA-Public Use
  Company Number: SUS1-2005-00758

PATIENT
  Sex: Male

DRUGS (1)
  1. PENTASA [Suspect]
     Indication: ENTEROCOLITIS HAEMORRHAGIC
     Dosage: RECTAL
     Route: 054
     Dates: start: 20050301

REACTIONS (1)
  - BENIGN PANCREATIC NEOPLASM [None]
